FAERS Safety Report 25765223 (Version 1)
Quarter: 2025Q3

REPORT INFORMATION
  Report Type: Spontaneous
  Country: CN (occurrence: CN)
  Receive Date: 20250905
  Receipt Date: 20250905
  Transmission Date: 20251020
  Serious: Yes (Other)
  Sender: RANBAXY
  Company Number: CN-SUN PHARMACEUTICAL INDUSTRIES INC-2025R1-525798

PATIENT
  Age: 73 Year
  Sex: Male

DRUGS (4)
  1. PREDNISONE [Suspect]
     Active Substance: PREDNISONE
     Indication: Thrombosis
     Dosage: 50 MILLIGRAM, DAILY
     Route: 065
  2. WARFARIN [Suspect]
     Active Substance: WARFARIN
     Indication: Thrombosis
     Dosage: 1.5 MILLIGRAM, DAILY
     Route: 065
  3. CILOSTAZOL [Suspect]
     Active Substance: CILOSTAZOL
     Indication: Thrombosis
     Dosage: 50 MILLIGRAM, BID
     Route: 065
  4. TRAMADOL [Suspect]
     Active Substance: TRAMADOL
     Indication: Thrombosis
     Dosage: 50 MILLIGRAM, BID
     Route: 065

REACTIONS (1)
  - Gangrene [Recovering/Resolving]
